FAERS Safety Report 19964331 (Version 1)
Quarter: 2021Q4

REPORT INFORMATION
  Report Type: Spontaneous
  Country: US (occurrence: US)
  Receive Date: 20211018
  Receipt Date: 20211018
  Transmission Date: 20220303
  Serious: Yes (Other)
  Sender: FDA-Public Use
  Company Number: None

PATIENT
  Age: 36 Year
  Sex: Female
  Weight: 58.5 kg

DRUGS (1)
  1. EMGALITY [Suspect]
     Active Substance: GALCANEZUMAB-GNLM
     Indication: Migraine
     Dosage: ?          QUANTITY:3 INJECTION(S);OTHER FREQUENCY:ONCE A MONTH;OTHER ROUTE:SUBQ INJECTION
     Dates: start: 20200201, end: 20210927

REACTIONS (1)
  - Alopecia [None]

NARRATIVE: CASE EVENT DATE: 20210601
